FAERS Safety Report 9777653 (Version 6)
Quarter: 2015Q1

REPORT INFORMATION
  Report Type: Report from Study
  Country: DE (occurrence: DE)
  Receive Date: 20131223
  Receipt Date: 20150206
  Transmission Date: 20150721
  Serious: Yes (Death, Hospitalization, Other)
  Sender: FDA-Public Use
  Company Number: DE-ROCHE-1222388

PATIENT
  Age: 53 Year
  Sex: Male
  Weight: 80 kg

DRUGS (26)
  1. BEVACIZUMAB [Suspect]
     Active Substance: BEVACIZUMAB
     Indication: BRAIN NEOPLASM MALIGNANT
     Dosage: DATE OF LAST DOSE PRIOR TO EVENT 31/OCT/2013
     Route: 042
     Dates: start: 20130531
  2. CEFTRIAXONE. [Concomitant]
     Active Substance: CEFTRIAXONE
     Route: 065
     Dates: start: 20120518, end: 20120526
  3. DEXAMETHASON [Concomitant]
     Active Substance: DEXAMETHASONE
     Route: 065
     Dates: start: 20130419, end: 20130426
  4. TORASEMIDE [Concomitant]
     Active Substance: TORSEMIDE
     Route: 065
     Dates: start: 20120519, end: 20120531
  5. MUCOSOLVAN [Concomitant]
     Active Substance: AMBROXOL\CLENBUTEROL
     Route: 065
     Dates: start: 20131017
  6. DEXAMETHASON [Concomitant]
     Active Substance: DEXAMETHASONE
     Route: 065
     Dates: start: 20120530, end: 201208
  7. DEXAMETHASON [Concomitant]
     Active Substance: DEXAMETHASONE
     Route: 065
     Dates: start: 20120516, end: 20120517
  8. DEXAMETHASON [Concomitant]
     Active Substance: DEXAMETHASONE
     Route: 065
     Dates: start: 20120523, end: 20120525
  9. DEXAMETHASON [Concomitant]
     Active Substance: DEXAMETHASONE
     Route: 065
     Dates: start: 20130429, end: 20130530
  10. DEXAMETHASON [Concomitant]
     Active Substance: DEXAMETHASONE
     Route: 065
     Dates: start: 20130928, end: 20131126
  11. BAYOTENSIN [Concomitant]
     Dosage: 1/PHIOLE
     Route: 065
     Dates: start: 20120524, end: 20120524
  12. IRINOTECAN [Suspect]
     Active Substance: IRINOTECAN
     Indication: BRAIN NEOPLASM MALIGNANT
     Dosage: DATE OF LAST DOSE PRIOR TO EVENT 31/OCT/2013
     Route: 042
     Dates: start: 20130531
  13. DEXAMETHASON [Concomitant]
     Active Substance: DEXAMETHASONE
     Route: 065
     Dates: start: 20120518, end: 20120522
  14. DEXAMETHASON [Concomitant]
     Active Substance: DEXAMETHASONE
     Route: 065
     Dates: start: 20120526, end: 20120529
  15. FRAGMIN [Concomitant]
     Active Substance: DALTEPARIN SODIUM
     Dosage: 2500/IE
     Route: 065
     Dates: start: 20120516, end: 20120531
  16. NOVALGIN [Concomitant]
     Active Substance: METAMIZOLE SODIUM
     Dosage: TOTAL DAILY DOSE:60 DROPS
     Route: 065
     Dates: start: 20120518, end: 20120520
  17. NOVALGIN [Concomitant]
     Active Substance: METAMIZOLE SODIUM
     Route: 065
     Dates: start: 20121017
  18. PANTOZOL [Concomitant]
     Active Substance: PANTOPRAZOLE SODIUM
     Route: 065
     Dates: start: 20120516
  19. TARGIN [Concomitant]
     Active Substance: NALOXONE HYDROCHLORIDE\OXYCODONE HYDROCHLORIDE
     Dosage: TOTAL DAILY DOSE:20/10 MG
     Route: 065
     Dates: start: 20120518, end: 20120522
  20. TORASEMIDE [Concomitant]
     Active Substance: TORSEMIDE
     Route: 065
     Dates: start: 20130419, end: 20130530
  21. TORASEMIDE [Concomitant]
     Active Substance: TORSEMIDE
     Route: 065
     Dates: start: 20130531, end: 20130927
  22. HERBAL NOS [Concomitant]
     Active Substance: HERBALS
     Route: 065
     Dates: start: 201208
  23. TILIDIN [Concomitant]
     Active Substance: NALOXONE HYDROCHLORIDE\TILIDINE HYDROCHLORIDE
     Route: 065
     Dates: start: 201208, end: 201208
  24. BAYOTENSIN [Concomitant]
     Dosage: 1/PHIOLE
     Route: 065
     Dates: start: 20130823, end: 20130823
  25. TEMOZOLOMIDE. [Suspect]
     Active Substance: TEMOZOLOMIDE
     Indication: BRAIN NEOPLASM MALIGNANT
     Dosage: DATE OF LAST DOSE PRIOR TO EVENT: 21/JAN/2013
     Route: 048
     Dates: start: 20120621
  26. DEXAMETHASON [Concomitant]
     Active Substance: DEXAMETHASONE
     Route: 065
     Dates: start: 20130531

REACTIONS (7)
  - Muscle spasms [Fatal]
  - Myoclonus [Recovered/Resolved with Sequelae]
  - Seizure [Unknown]
  - Multi-organ failure [Fatal]
  - Hemiparesis [Not Recovered/Not Resolved]
  - Deep vein thrombosis [Recovering/Resolving]
  - Epistaxis [Recovered/Resolved]

NARRATIVE: CASE EVENT DATE: 20130414
